FAERS Safety Report 23149665 (Version 1)
Quarter: 2023Q4

REPORT INFORMATION
  Report Type: Report from Study
  Country: US (occurrence: US)
  Receive Date: 20231106
  Receipt Date: 20231106
  Transmission Date: 20240110
  Serious: Yes (Hospitalization)
  Sender: FDA-Public Use
  Company Number: US-Eisai-EC-2023-150013

PATIENT
  Age: 70 Year
  Sex: Female

DRUGS (2)
  1. LENVIMA [Suspect]
     Active Substance: LENVATINIB
     Indication: Endometrial cancer
     Route: 048
     Dates: start: 20230928, end: 202310
  2. KEYTRUDA [Concomitant]
     Active Substance: PEMBROLIZUMAB

REACTIONS (13)
  - Pancreatitis [Unknown]
  - Blood pressure increased [Unknown]
  - Headache [Unknown]
  - Genital pain [Unknown]
  - Insomnia [Unknown]
  - Arthralgia [Unknown]
  - Amnesia [Unknown]
  - Rash [Unknown]
  - Abdominal pain [Unknown]
  - Fatigue [Unknown]
  - Vomiting [Unknown]
  - Urinary tract infection [Unknown]
  - Nausea [Unknown]

NARRATIVE: CASE EVENT DATE: 20231001
